FAERS Safety Report 5912462-9 (Version None)
Quarter: 2008Q4

REPORT INFORMATION
  Report Type: 
  Country: None (occurrence: None)
  Receive Date: 20081007
  Receipt Date: 20081007
  Transmission Date: 20090506
  Serious: Yes (Hospitalization)
  Sender: FDA-Public Use
  Company Number: None

PATIENT
  Age: 88 Year
  Sex: Female
  Weight: 89.3 kg

DRUGS (14)
  1. WARFARIN SODIUM [Suspect]
     Indication: ARTERIAL INSUFFICIENCY
     Dosage: 3 MG DAILY PO
     Route: 048
  2. WARFARIN SODIUM [Suspect]
     Indication: ATRIAL FLUTTER
     Dosage: 3 MG DAILY PO
     Route: 048
  3. WARFARIN SODIUM [Suspect]
     Indication: THROMBOSIS
     Dosage: 3 MG DAILY PO
     Route: 048
  4. ENOXAPARIN SODIUM [Suspect]
     Indication: ANTICOAGULANT THERAPY
     Dosage: 100 MG Q12H SQ
     Route: 058
  5. ENOXAPARIN SODIUM [Suspect]
     Indication: THROMBOSIS
     Dosage: 100 MG Q12H SQ
     Route: 058
  6. ASPIRIN [Concomitant]
     Indication: ARTERIAL INSUFFICIENCY
  7. IRBESARTAN [Concomitant]
  8. FUROSEMIDE [Concomitant]
  9. GLIPIZIDE [Concomitant]
  10. POTASSIUM CHLORIDE [Concomitant]
  11. ATORVASTATIN CALCIUM [Concomitant]
  12. METFORMIN HCL [Concomitant]
  13. METOPROLOL TARTRATE [Concomitant]
  14. VICODIN [Concomitant]

REACTIONS (3)
  - ANAEMIA [None]
  - RETROPERITONEAL HAEMORRHAGE [None]
  - TACHYCARDIA [None]
